FAERS Safety Report 17461380 (Version 8)
Quarter: 2024Q2

REPORT INFORMATION
  Report Type: Spontaneous
  Country: US (occurrence: US)
  Receive Date: 20200226
  Receipt Date: 20240419
  Transmission Date: 20240716
  Serious: Yes (Death, Other)
  Sender: FDA-Public Use
  Company Number: US-PFIZER INC-2020081045

PATIENT
  Age: 76 Year
  Sex: Male
  Weight: 95 kg

DRUGS (1)
  1. XELJANZ XR [Suspect]
     Active Substance: TOFACITINIB CITRATE
     Dosage: 11 MG
     Route: 048

REACTIONS (6)
  - Death [Fatal]
  - Cerebrovascular accident [Unknown]
  - Mobility decreased [Unknown]
  - Gait inability [Unknown]
  - Pain in extremity [Unknown]
  - Feeling abnormal [Unknown]

NARRATIVE: CASE EVENT DATE: 20240104
